FAERS Safety Report 9113101 (Version 1)
Quarter: 2013Q1

REPORT INFORMATION
  Report Type: Spontaneous
  Country: US (occurrence: US)
  Receive Date: 20130211
  Receipt Date: 20130211
  Transmission Date: 20140127
  Serious: Yes (Other)
  Sender: FDA-Public Use
  Company Number: US-ASTRAZENECA-2013SE07933

PATIENT
  Age: 86 Year
  Sex: Female
  Weight: 70.3 kg

DRUGS (3)
  1. CRESTOR [Suspect]
     Indication: BLOOD CHOLESTEROL ABNORMAL
     Route: 048
     Dates: start: 20130131
  2. COMADINE [Concomitant]
     Indication: ATRIAL FIBRILLATION
  3. NASAL SPRAY [Concomitant]
     Indication: PARATHYROID DISORDER

REACTIONS (2)
  - Hypertension [Unknown]
  - Sleep disorder [Unknown]
